FAERS Safety Report 14761968 (Version 5)
Quarter: 2020Q1

REPORT INFORMATION
  Report Type: Report from Study
  Country: US (occurrence: US)
  Receive Date: 20180416
  Receipt Date: 20200311
  Transmission Date: 20200409
  Serious: Yes (Other)
  Sender: FDA-Public Use
  Company Number: US-ROCHE-2071814

PATIENT
  Age: 71 Year
  Sex: Female
  Weight: 99.43 kg

DRUGS (4)
  1. ACTEMRA [Suspect]
     Active Substance: TOCILIZUMAB
     Route: 058
     Dates: start: 201907, end: 201909
  2. METFORMIN [Concomitant]
     Active Substance: METFORMIN HYDROCHLORIDE
     Indication: DIABETES MELLITUS
     Route: 065
  3. ACTEMRA [Suspect]
     Active Substance: TOCILIZUMAB
     Indication: OSTEOARTHRITIS
     Route: 058
     Dates: end: 20171229
  4. ACTEMRA [Suspect]
     Active Substance: TOCILIZUMAB
     Indication: RHEUMATOID ARTHRITIS
     Dosage: REFILL 3 TIMES, FOR 3 MONTHS, ONE SHOT A WEEK
     Route: 058
     Dates: start: 201810, end: 201905

REACTIONS (17)
  - Urinary tract infection [Recovered/Resolved]
  - Sinusitis [Recovered/Resolved]
  - Anxiety [Unknown]
  - Fall [Unknown]
  - Ankle fracture [Recovered/Resolved]
  - White blood cell count increased [Recovered/Resolved]
  - Sinusitis [Recovering/Resolving]
  - Infection [Unknown]
  - Malaise [Unknown]
  - Blood cholesterol increased [Not Recovered/Not Resolved]
  - Leukaemia [Not Recovered/Not Resolved]
  - Malaise [Recovered/Resolved]
  - Respiratory tract infection [Recovered/Resolved]
  - Cystitis [Recovered/Resolved]
  - Clavicle fracture [Unknown]
  - Clavicle fracture [Recovered/Resolved]
  - Drug intolerance [Not Recovered/Not Resolved]

NARRATIVE: CASE EVENT DATE: 201812
